FAERS Safety Report 8910357 (Version 3)
Quarter: 2013Q1

REPORT INFORMATION
  Report Type: Spontaneous
  Country: US (occurrence: US)
  Receive Date: 20121115
  Receipt Date: 20130226
  Transmission Date: 20140127
  Serious: No
  Sender: FDA-Public Use
  Company Number: US-BIOGENIDEC-2012BI051607

PATIENT
  Age: 54 None
  Sex: Female

DRUGS (2)
  1. AVONEX [Suspect]
     Indication: MULTIPLE SCLEROSIS
     Route: 030
     Dates: start: 20120824
  2. ANTIBIOTICS [Concomitant]

REACTIONS (9)
  - Hypoaesthesia [Unknown]
  - Injection site mass [Recovered/Resolved]
  - Injection site warmth [Recovered/Resolved]
  - Feeling cold [Unknown]
  - Skin warm [Unknown]
  - Injection site swelling [Recovered/Resolved]
  - Urticaria [Unknown]
  - Injection site pain [Recovered/Resolved]
  - Fatigue [Unknown]
